FAERS Safety Report 7547344-2 (Version None)
Quarter: 2011Q2

REPORT INFORMATION
  Report Type: 
  Country: None (occurrence: None)
  Receive Date: 20110614
  Receipt Date: 20110531
  Transmission Date: 20111010
  Serious: Yes (Hospitalization)
  Sender: FDA-Public Use
  Company Number: US-ELI_LILLY_AND_COMPANY-US201009005201

PATIENT
  Age: 87 Year
  Sex: Female
  Weight: 52 kg

DRUGS (13)
  1. PROPRANOLOL [Concomitant]
     Dosage: UNK, UNKNOWN
     Route: 065
  2. NEPHRO-VITE [Concomitant]
     Dosage: UNK, UNKNOWN
     Route: 065
  3. MULTIVITAMIN [Concomitant]
     Dosage: UNK, UNKNOWN
     Route: 065
  4. LEVOXYL [Concomitant]
     Dosage: UNK, UNKNOWN
     Route: 065
  5. LIDODERM [Concomitant]
     Dosage: UNK, UNKNOWN
     Route: 065
  6. LORATADINE [Concomitant]
     Dosage: UNK, UNKNOWN
     Route: 065
  7. MULTI-VITAMIN [Concomitant]
     Dosage: UNK, UNKNOWN
     Route: 065
  8. FUROSEMIDE [Concomitant]
     Dosage: UNK, UNKNOWN
     Route: 065
  9. METOPROLOL [Concomitant]
     Dosage: UNK, UNKNOWN
     Route: 065
  10. PROTONIX [Concomitant]
     Dosage: UNK, UNKNOWN
     Route: 065
  11. FORTEO [Suspect]
     Indication: OSTEOPOROSIS
     Dosage: 20 UG, UNKNOWN
     Route: 058
     Dates: start: 20100716
  12. PE-TAM [Concomitant]
     Dosage: UNK, UNKNOWN
     Route: 065
  13. MAGNESIUM SULFATE [Concomitant]
     Dosage: UNK, UNKNOWN
     Route: 065

REACTIONS (7)
  - HYPERHIDROSIS [None]
  - DRUG DOSE OMISSION [None]
  - ANGINA UNSTABLE [None]
  - CHEST PAIN [None]
  - DIZZINESS [None]
  - INFLUENZA [None]
  - MALAISE [None]
